FAERS Safety Report 23148506 (Version 2)
Quarter: 2023Q4

REPORT INFORMATION
  Report Type: Spontaneous
  Country: JP (occurrence: JP)
  Receive Date: 20231106
  Receipt Date: 20231121
  Transmission Date: 20240109
  Serious: Yes (Hospitalization)
  Sender: FDA-Public Use
  Company Number: JP-CHEPLA-2023013780

PATIENT
  Age: 4 Decade
  Sex: Male

DRUGS (1)
  1. VALGANCICLOVIR [Suspect]
     Active Substance: VALGANCICLOVIR
     Indication: Cytomegalovirus enterocolitis

REACTIONS (3)
  - Liver disorder [Unknown]
  - Pyrexia [Unknown]
  - Off label use [Recovered/Resolved]
